FAERS Safety Report 8267812-8 (Version None)
Quarter: 2012Q2

REPORT INFORMATION
  Report Type: 
  Country: None (occurrence: None)
  Receive Date: 20120404
  Receipt Date: 20120330
  Transmission Date: 20120825
  Serious: Yes (Hospitalization)
  Sender: FDA-Public Use
  Company Number: 217130

PATIENT
  Age: 77 Year
  Sex: Female

DRUGS (1)
  1. CALCIPOTRIENE AND BETAMETHASONE DIPROPIONATE [Suspect]
     Indication: PSORIASIS
     Dosage: TOPICAL
     Route: 061
     Dates: start: 20070101

REACTIONS (4)
  - SKIN GRAFT [None]
  - WOUND [None]
  - FALL [None]
  - THROMBOSIS [None]
